FAERS Safety Report 16425698 (Version 1)
Quarter: 2019Q2

REPORT INFORMATION
  Report Type: Spontaneous
  Country: US (occurrence: US)
  Receive Date: 20190613
  Receipt Date: 20190613
  Transmission Date: 20190711
  Serious: No
  Sender: FDA-Public Use
  Company Number: US-PFIZER INC-2019247743

PATIENT
  Age: 65 Year
  Sex: Female

DRUGS (12)
  1. DULOXETINE. [Suspect]
     Active Substance: DULOXETINE
     Dosage: UNK
  2. BACITRACIN. [Suspect]
     Active Substance: BACITRACIN
     Dosage: UNK
  3. MORPHINE SULFATE. [Suspect]
     Active Substance: MORPHINE SULFATE
     Dosage: UNK
  4. VICODIN [Suspect]
     Active Substance: ACETAMINOPHEN\HYDROCODONE BITARTRATE
     Dosage: UNK
  5. CLINDAMYCIN HCL [Suspect]
     Active Substance: CLINDAMYCIN HYDROCHLORIDE
     Dosage: UNK
  6. CITALOPRAM [Suspect]
     Active Substance: CITALOPRAM HYDROBROMIDE
     Dosage: UNK
  7. NEOMYCIN SULFATE/POLYMYXIN B SULFATE [Suspect]
     Active Substance: NEOMYCIN SULFATE\POLYMYXIN B SULFATE
     Dosage: UNK
  8. ASA [Suspect]
     Active Substance: ASPIRIN
     Dosage: UNK
  9. QUETIAPINE. [Suspect]
     Active Substance: QUETIAPINE
     Dosage: UNK
  10. CHANTIX [Suspect]
     Active Substance: VARENICLINE TARTRATE
     Dosage: UNK
  11. HYDROMORPHONE HYDROCHLORIDE. [Suspect]
     Active Substance: HYDROMORPHONE HYDROCHLORIDE
     Dosage: UNK
  12. OXYMETAZOLINE [Suspect]
     Active Substance: OXYMETAZOLINE
     Dosage: UNK

REACTIONS (1)
  - Drug hypersensitivity [Unknown]
